FAERS Safety Report 23619572 (Version 2)
Quarter: 2024Q1

REPORT INFORMATION
  Report Type: Report from Study
  Country: CH (occurrence: CH)
  Receive Date: 20240312
  Receipt Date: 20240327
  Transmission Date: 20240409
  Serious: Yes (Death)
  Sender: FDA-Public Use
  Company Number: CH-ABBVIE-5675006

PATIENT
  Sex: Male
  Weight: 56 kg

DRUGS (2)
  1. CARBIDOPA\LEVODOPA [Suspect]
     Active Substance: CARBIDOPA\LEVODOPA
     Indication: Parkinson^s disease
     Dosage: MD: 2.0ML, CRD: 2.0 ML/H, ED: 1.00 ML, CRN: 1.5 ML/H?FREQUENCY: 24H THERAPY,?LAST ADMIN DATE: 2023
     Route: 050
     Dates: start: 20231102
  2. CARBIDOPA\LEVODOPA [Suspect]
     Active Substance: CARBIDOPA\LEVODOPA
     Dosage: MD: 4.5 ML, CRD: 4.0 ML/H, ED: 1.50 ML, CRN: 2.6 ML/H,?FREQUENCY: 24H THERAPY
     Route: 050
     Dates: start: 20231214

REACTIONS (1)
  - Assisted suicide [Fatal]
